FAERS Safety Report 8238156-5 (Version None)
Quarter: 2012Q1

REPORT INFORMATION
  Report Type: 
  Country: None (occurrence: None)
  Receive Date: 20120327
  Receipt Date: 20120312
  Transmission Date: 20120608
  Serious: Yes (Death, Hospitalization)
  Sender: FDA-Public Use
  Company Number: JP-ROCHE-1003570

PATIENT
  Sex: Female
  Weight: 42 kg

DRUGS (9)
  1. PACLITAXEL [Suspect]
     Indication: BREAST CANCER METASTATIC
     Route: 041
     Dates: start: 20100223, end: 20100616
  2. VINORELBINE [Concomitant]
     Indication: BREAST CANCER METASTATIC
     Dosage: DOSAGE IS UNCERTAIN.
     Route: 042
     Dates: start: 20090827
  3. VINORELBINE [Concomitant]
     Route: 048
     Dates: end: 20100209
  4. HERCEPTIN [Suspect]
     Indication: BREAST CANCER METASTATIC
     Route: 041
     Dates: start: 20070701, end: 20070701
  5. HERCEPTIN [Suspect]
     Route: 041
     Dates: start: 20070801, end: 20090201
  6. HERCEPTIN [Suspect]
     Dosage: IT IS ONE ADMINISTERING WEEKLY HOLIDAY MEDICINE FOR THREE WEEKS.
     Route: 041
     Dates: start: 20090301, end: 20090801
  7. XELODA [Concomitant]
     Indication: BREAST CANCER METASTATIC
     Route: 048
     Dates: start: 20090827, end: 20100209
  8. LAPATINIB TOSILATE [Concomitant]
     Indication: BREAST CANCER METASTATIC
     Route: 041
     Dates: start: 20090301, end: 20090801
  9. HERCEPTIN [Suspect]
     Dosage: IT IS ONE ADMINISTERING WEEKLY HOLIDAY MEDICINE FOR THREE WEEKS.
     Route: 041
     Dates: start: 20100223, end: 20100616

REACTIONS (4)
  - LUNG CANCER METASTATIC [None]
  - MALIGNANT PLEURAL EFFUSION [None]
  - INTERSTITIAL LUNG DISEASE [None]
  - RASH [None]
